FAERS Safety Report 9939403 (Version 1)
Quarter: 2014Q1

REPORT INFORMATION
  Report Type: Report from Study
  Country: US (occurrence: US)
  Receive Date: 20140303
  Receipt Date: 20140303
  Transmission Date: 20141002
  Serious: No
  Sender: FDA-Public Use
  Company Number: US-ABBVIE-13P-163-1033297-00

PATIENT
  Age: 34 Year
  Sex: Female
  Weight: 54.48 kg

DRUGS (4)
  1. HUMIRA [Suspect]
     Indication: CROHN^S DISEASE
     Dates: start: 20121231, end: 20121231
  2. HUMIRA [Suspect]
     Dates: start: 201301, end: 201301
  3. BENADRYL [Suspect]
     Indication: PRURITUS
  4. VITAMINS [Concomitant]
     Indication: SUPPLEMENTATION THERAPY

REACTIONS (3)
  - Urticaria [Not Recovered/Not Resolved]
  - Pruritus [Not Recovered/Not Resolved]
  - Somnolence [Not Recovered/Not Resolved]
